FAERS Safety Report 4433595-2 (Version None)
Quarter: 2004Q3

REPORT INFORMATION
  Report Type: 
  Country: None (occurrence: None)
  Receive Date: 20040825
  Receipt Date: 20040825
  Transmission Date: 20050211
  Serious: Yes (Other)
  Sender: FDA-Public Use
  Company Number: None

PATIENT
  Age: 72 Year
  Sex: Male
  Weight: 72.1219 kg

DRUGS (3)
  1. FLUOROURACIL [Suspect]
  2. LEUCOVORIN CALCIUM [Suspect]
  3. CPT-11 [Suspect]

REACTIONS (5)
  - DYSPNOEA EXACERBATED [None]
  - LUNG SQUAMOUS CELL CARCINOMA STAGE III [None]
  - PYREXIA [None]
  - STOMATITIS [None]
  - WEIGHT DECREASED [None]
